FAERS Safety Report 7571041-0 (Version None)
Quarter: 2011Q2

REPORT INFORMATION
  Report Type: 
  Country: None (occurrence: None)
  Receive Date: 20110622
  Receipt Date: 20110622
  Transmission Date: 20111010
  Serious: No
  Sender: FDA-Public Use
  Company Number: None

PATIENT
  Age: 77 Year
  Sex: Male
  Weight: 88.4514 kg

DRUGS (2)
  1. CELEXA [Suspect]
     Indication: DEPRESSION
     Dosage: 20MG DAILY
     Dates: start: 20110610
  2. CELEXA [Suspect]
     Indication: DEPRESSION
     Dosage: 20MG DAILY
     Dates: start: 20110609

REACTIONS (3)
  - TREMOR [None]
  - NIGHTMARE [None]
  - MIDDLE INSOMNIA [None]
